FAERS Safety Report 11692833 (Version 2)
Quarter: 2015Q4

REPORT INFORMATION
  Report Type: Report from Study
  Country: BR (occurrence: BR)
  Receive Date: 20151103
  Receipt Date: 20151203
  Transmission Date: 20160304
  Serious: Yes (Other)
  Sender: FDA-Public Use
  Company Number: BR-EMD SERONO-8050731

PATIENT
  Age: 36 Year
  Sex: Female
  Weight: 52 kg

DRUGS (1)
  1. REBIF [Suspect]
     Active Substance: INTERFERON BETA-1A
     Indication: RELAPSING-REMITTING MULTIPLE SCLEROSIS
     Dosage: FULL DOSE
     Route: 058
     Dates: start: 20140531

REACTIONS (13)
  - Tachycardia [Recovering/Resolving]
  - Diarrhoea [Recovered/Resolved]
  - Injection site bruising [Recovering/Resolving]
  - Tenosynovitis [Recovering/Resolving]
  - Injection site pain [Recovering/Resolving]
  - Injection site warmth [Recovering/Resolving]
  - Injection site induration [Recovering/Resolving]
  - Chills [Recovering/Resolving]
  - Pharyngitis [Recovered/Resolved]
  - Tremor [Not Recovered/Not Resolved]
  - Headache [Recovering/Resolving]
  - Apparent death [Not Recovered/Not Resolved]
  - Injection site erythema [Recovering/Resolving]

NARRATIVE: CASE EVENT DATE: 201508
